FAERS Safety Report 12246432 (Version 10)
Quarter: 2017Q3

REPORT INFORMATION
  Report Type: Report from Study
  Country: DE (occurrence: DE)
  Receive Date: 20160407
  Receipt Date: 20170814
  Transmission Date: 20171127
  Serious: Yes (Hospitalization)
  Sender: FDA-Public Use
  Company Number: DE-B.I. PHARMACEUTICALS,INC./RIDGEFIELD-2015-BI-42987DE

PATIENT
  Age: 80 Year
  Sex: Female
  Weight: 54 kg

DRUGS (11)
  1. CLEXANE MULTI [Concomitant]
     Active Substance: ENOXAPARIN SODIUM
     Indication: PRE-EXISTING DISEASE
     Route: 042
  2. VALSARTAN. [Concomitant]
     Active Substance: VALSARTAN
     Indication: PRE-EXISTING DISEASE
     Route: 048
  3. IMODIUM [Concomitant]
     Active Substance: LOPERAMIDE HYDROCHLORIDE
     Indication: PROPHYLAXIS
     Route: 048
     Dates: start: 20150723
  4. LANSOPRAZOL [Concomitant]
     Active Substance: LANSOPRAZOLE
     Indication: PROPHYLAXIS
     Route: 048
  5. GILOTRIF [Suspect]
     Active Substance: AFATINIB
     Route: 048
     Dates: start: 20150811, end: 20160321
  6. METOPROLOL. [Concomitant]
     Active Substance: METOPROLOL
     Indication: PRE-EXISTING DISEASE
     Route: 048
  7. GILOTRIF [Suspect]
     Active Substance: AFATINIB
     Indication: NON-SMALL CELL LUNG CANCER
     Route: 048
     Dates: start: 20150723
  8. FUROSEMIDE. [Concomitant]
     Active Substance: FUROSEMIDE
     Indication: PRE-EXISTING DISEASE
     Route: 048
  9. TAMOXIFEN [Concomitant]
     Active Substance: TAMOXIFEN
     Indication: PRE-EXISTING DISEASE
     Route: 048
     Dates: start: 20110515
  10. NITRO LINGULA [Concomitant]
     Indication: PRODUCT USED FOR UNKNOWN INDICATION
     Route: 060
     Dates: start: 20150824
  11. ONDANSETRON [Concomitant]
     Active Substance: ONDANSETRON
     Indication: PRODUCT USED FOR UNKNOWN INDICATION
     Route: 048
     Dates: start: 20150806

REACTIONS (19)
  - Decreased appetite [Recovered/Resolved]
  - Upper-airway cough syndrome [Not Recovered/Not Resolved]
  - General physical health deterioration [Recovered/Resolved]
  - Amnesia [Not Recovered/Not Resolved]
  - Headache [Recovered/Resolved]
  - Mucosal infection [Not Recovered/Not Resolved]
  - Abdominal pain [Not Recovered/Not Resolved]
  - Gastritis [Not Recovered/Not Resolved]
  - Vomiting [Recovered/Resolved]
  - Angina pectoris [Not Recovered/Not Resolved]
  - Diarrhoea [Recovered/Resolved]
  - Gastritis [Not Recovered/Not Resolved]
  - Oropharyngeal pain [Recovered/Resolved]
  - Nausea [Recovered/Resolved]
  - Weight decreased [Recovered/Resolved]
  - Back pain [Not Recovered/Not Resolved]
  - Dry skin [Not Recovered/Not Resolved]
  - Spinal fracture [Not Recovered/Not Resolved]
  - Dizziness [Recovered/Resolved]

NARRATIVE: CASE EVENT DATE: 201507
